FAERS Safety Report 8159095-4 (Version None)
Quarter: 2012Q1

REPORT INFORMATION
  Report Type: 
  Country: None (occurrence: None)
  Receive Date: 20120223
  Receipt Date: 20120214
  Transmission Date: 20120608
  Serious: Yes (Hospitalization, Other)
  Sender: FDA-Public Use
  Company Number: US-JNJFOC-20110505416

PATIENT
  Sex: Female
  Weight: 64.4 kg

DRUGS (17)
  1. REMICADE [Suspect]
     Route: 042
     Dates: start: 20111111
  2. DIPHENHYDRAMINE HCL [Concomitant]
  3. REMICADE [Suspect]
     Route: 042
     Dates: start: 20110410
  4. REMICADE [Suspect]
     Route: 042
     Dates: start: 20110507
  5. REMICADE [Suspect]
     Route: 042
     Dates: start: 20110523
  6. REMICADE [Suspect]
     Route: 042
     Dates: start: 20110427
  7. ANTIBIOTIC [Suspect]
     Indication: INFLAMMATORY BOWEL DISEASE
  8. CIPROFLOXACIN [Suspect]
     Indication: ANTIBIOTIC THERAPY
  9. TUBERCULIN NOS [Concomitant]
  10. PREVACID [Concomitant]
  11. VITAMIN AND MINERAL PRENATAL SUPPLEMENT W/ FOLIC ACID CAP [Concomitant]
  12. REMICADE [Suspect]
     Indication: CROHN'S DISEASE
     Route: 042
     Dates: start: 20110912
  13. VITAMIN D [Concomitant]
  14. REMICADE [Suspect]
     Route: 042
     Dates: start: 20110701
  15. MESALAMINE [Suspect]
     Indication: PRODUCT USED FOR UNKNOWN INDICATION
  16. PREDNISONE [Concomitant]
     Route: 048
  17. FLAGYL [Concomitant]
     Indication: ANTIBIOTIC THERAPY

REACTIONS (2)
  - CROHN'S DISEASE [None]
  - DEHYDRATION [None]
